FAERS Safety Report 16045519 (Version 1)
Quarter: 2019Q1

REPORT INFORMATION
  Report Type: Spontaneous
  Country: US (occurrence: US)
  Receive Date: 20190307
  Receipt Date: 20190307
  Transmission Date: 20190418
  Serious: No
  Sender: FDA-Public Use
  Company Number: US-SHIRE-US201907560

PATIENT
  Sex: Male
  Weight: 77.1 kg

DRUGS (1)
  1. XIIDRA [Suspect]
     Active Substance: LIFITEGRAST
     Indication: DRY EYE
     Dosage: 1 GTT DROPS, 2X/DAY:BID
     Route: 047
     Dates: start: 2017

REACTIONS (4)
  - Vision blurred [Unknown]
  - Visual impairment [Unknown]
  - Instillation site reaction [Unknown]
  - Drug ineffective [Unknown]
